FAERS Safety Report 11610406 (Version 3)
Quarter: 2015Q4

REPORT INFORMATION
  Report Type: Report from Study
  Country: US (occurrence: US)
  Receive Date: 20151008
  Receipt Date: 20151117
  Transmission Date: 20160304
  Serious: Yes (Hospitalization)
  Sender: FDA-Public Use
  Company Number: US-009507513-1510USA000687

PATIENT
  Age: 29 Year
  Sex: Female

DRUGS (3)
  1. IRON (UNSPECIFIED) (+) MINERALS (UNSPECIFIED) (+) VITAMINS (UNSPECIFIE [Concomitant]
     Active Substance: IRON\MINERALS\VITAMINS
     Indication: ROUTINE HEALTH MAINTENANCE
     Dosage: UNK, QD
     Dates: start: 20141210
  2. REBETOL [Suspect]
     Active Substance: RIBAVIRIN
     Indication: HEPATITIS C
     Dosage: UNK
     Route: 048
     Dates: start: 20141115
  3. SOVALDI [Suspect]
     Active Substance: SOFOSBUVIR
     Dosage: UNK
     Dates: start: 20141115

REACTIONS (3)
  - Exposure via body fluid [Recovered/Resolved]
  - Premature delivery [Unknown]
  - Pre-eclampsia [Recovered/Resolved]

NARRATIVE: CASE EVENT DATE: 20150724
